FAERS Safety Report 5409726-4 (Version None)
Quarter: 2007Q3

REPORT INFORMATION
  Report Type: 
  Country: None (occurrence: None)
  Receive Date: 20070809
  Receipt Date: 20070731
  Transmission Date: 20080115
  Serious: Yes (Other)
  Sender: FDA-Public Use
  Company Number: B0459361A

PATIENT
  Sex: Female
  Weight: 61.4 kg

DRUGS (1)
  1. AVANDIA [Suspect]
     Route: 048
     Dates: start: 20060401

REACTIONS (2)
  - BLOOD BILIRUBIN INCREASED [None]
  - CALCULUS BLADDER [None]
